FAERS Safety Report 23609066 (Version 1)
Quarter: 2024Q1

REPORT INFORMATION
  Report Type: Spontaneous
  Country: FR (occurrence: FR)
  Receive Date: 20240308
  Receipt Date: 20240308
  Transmission Date: 20240410
  Serious: Yes (Hospitalization)
  Sender: FDA-Public Use
  Company Number: None

PATIENT
  Age: 24 Year
  Sex: Male

DRUGS (5)
  1. ALPRAZOLAM [Suspect]
     Active Substance: ALPRAZOLAM
     Indication: Anxiety
     Dosage: DURATION: 36 DAYS.
     Route: 048
     Dates: start: 20230815, end: 20230920
  2. LOXAPINE [Suspect]
     Active Substance: LOXAPINE
     Indication: Depression
     Dosage: DURATION: 13 DAYS.
     Route: 048
     Dates: start: 20230904, end: 20230917
  3. BUSPIRONE HYDROCHLORIDE [Suspect]
     Active Substance: BUSPIRONE HYDROCHLORIDE
     Indication: Depression
     Dosage: DURATION: 21 DAYS.
     Route: 048
     Dates: start: 20230904, end: 20230925
  4. PROPRANOLOL [Suspect]
     Active Substance: PROPRANOLOL HYDROCHLORIDE
     Indication: Product used for unknown indication
     Dosage: DURATION: 13 DAYS.
     Route: 048
     Dates: start: 20230904, end: 20230917
  5. ZOPICLONE [Suspect]
     Active Substance: ZOPICLONE
     Indication: Insomnia
     Dosage: DURATION: 41 DAYS.
     Route: 048
     Dates: start: 20230815, end: 20230925

REACTIONS (2)
  - Dyskinesia [Recovered/Resolved]
  - Urinary retention [Recovered/Resolved]

NARRATIVE: CASE EVENT DATE: 20230917
